FAERS Safety Report 18153118 (Version 1)
Quarter: 2020Q3

REPORT INFORMATION
  Report Type: Spontaneous
  Country: US (occurrence: US)
  Receive Date: 20200815
  Receipt Date: 20200815
  Transmission Date: 20201103
  Serious: Yes (Hospitalization, Other)
  Sender: FDA-Public Use
  Company Number: US-009507513-2008USA005862

PATIENT
  Age: 72 Year
  Sex: Male

DRUGS (6)
  1. SINEMET [Suspect]
     Active Substance: CARBIDOPA\LEVODOPA
     Dosage: 2 DOSAGE FORM, QID
     Route: 048
     Dates: end: 20200716
  2. SINEMET [Suspect]
     Active Substance: CARBIDOPA\LEVODOPA
     Dosage: 1.5 DOSAGE FORM, BID (LATE MORNING AND EVENING)
     Route: 048
     Dates: start: 20200716
  3. WELLBUTRIN [Suspect]
     Active Substance: BUPROPION HYDROCHLORIDE
     Dosage: UNK
     Dates: start: 2020, end: 2020
  4. SINEMET [Suspect]
     Active Substance: CARBIDOPA\LEVODOPA
     Dosage: 2 DOSAGE FORM, BID (MORNING AND AFTERNOON)
     Dates: start: 20200716
  5. MYRBETRIQ [Suspect]
     Active Substance: MIRABEGRON
     Dosage: UNK
     Dates: start: 2020, end: 202007
  6. AMANTADINE. [Suspect]
     Active Substance: AMANTADINE HYDROCHLORIDE
     Indication: DYSKINESIA
     Dosage: 274 MILLIGRAM, HS
     Route: 048
     Dates: start: 20181010

REACTIONS (5)
  - Decreased appetite [Recovering/Resolving]
  - Urinary tract infection [Recovering/Resolving]
  - Frustration tolerance decreased [Recovering/Resolving]
  - Confusional state [Recovering/Resolving]
  - Hallucination, visual [Recovering/Resolving]

NARRATIVE: CASE EVENT DATE: 2020
